FAERS Safety Report 4588604-7 (Version None)
Quarter: 2005Q1

REPORT INFORMATION
  Report Type: 
  Country: None (occurrence: None)
  Receive Date: 20050222
  Receipt Date: 20050216
  Transmission Date: 20050727
  Serious: Yes (Other)
  Sender: FDA-Public Use
  Company Number: US-ROCHE-395743

PATIENT
  Age: 26 Year
  Sex: Female

DRUGS (4)
  1. ISOTRETINOIN [Suspect]
     Indication: DRUG USE FOR UNKNOWN INDICATION
     Route: 065
     Dates: start: 20030415, end: 20030615
  2. ACCUTANE [Suspect]
     Indication: DRUG USE FOR UNKNOWN INDICATION
     Route: 065
     Dates: start: 20030315, end: 20030315
  3. ORAL CONTRACEPTIVE PILL [Concomitant]
     Indication: CONTRACEPTION
  4. LUNELLE INJECTABLE [Concomitant]
     Indication: CONTRACEPTION
     Route: 058
     Dates: start: 20030915, end: 20030915

REACTIONS (2)
  - DRUG EXPOSURE DURING PREGNANCY [None]
  - ECTOPIC PREGNANCY [None]
